FAERS Safety Report 8848518 (Version 1)
Quarter: 2012Q4

REPORT INFORMATION
  Report Type: 
  Country: JP (occurrence: JP)
  Receive Date: 20121019
  Receipt Date: 20121019
  Transmission Date: 20130627
  Serious: Yes (Death, Hospitalization)
  Sender: FDA-Public Use
  Company Number: JP-ACCORD-014952

PATIENT
  Age: 74 Year
  Sex: Male

DRUGS (3)
  1. ETOPOSIDE [Suspect]
     Indication: HEMATOLOGICAL MALIGNANCY
     Dosage: on day days 1-3
  2. MITOXANTRONE [Suspect]
     Indication: HEMATOLOGICAL MALIGNANCY
     Dosage: on day days 3-5
  3. ARA-C [Suspect]
     Indication: HEMATOLOGICAL MALIGNANCY
     Dosage: on day days 1-5

REACTIONS (4)
  - Septic shock [Fatal]
  - Bacillus test positive [Unknown]
  - Off label use [Unknown]
  - Large intestinal ulcer [None]
